FAERS Safety Report 6359566-7 (Version None)
Quarter: 2009Q3

REPORT INFORMATION
  Report Type: 
  Country: None (occurrence: None)
  Receive Date: 20090917
  Receipt Date: 20090909
  Transmission Date: 20100115
  Serious: Yes (Death, Other)
  Sender: FDA-Public Use
  Company Number: GB-BAXTER-2009BH013947

PATIENT
  Sex: Male

DRUGS (1)
  1. HUMAN ALBUMIN IMMUNO 5% [Suspect]
     Indication: DRUG USE FOR UNKNOWN INDICATION
     Route: 065

REACTIONS (2)
  - CHILLS [None]
  - HAEMODYNAMIC INSTABILITY [None]
